FAERS Safety Report 13402450 (Version 1)
Quarter: 2017Q2

REPORT INFORMATION
  Report Type: Spontaneous
  Country: BE (occurrence: BE)
  Receive Date: 20170404
  Receipt Date: 20170404
  Transmission Date: 20170830
  Serious: Yes (Death, Hospitalization)
  Sender: FDA-Public Use
  Company Number: BE-INGENUS PHARMACEUTICALS NJ, LLC-ING201703-000169

PATIENT
  Age: 33 Year
  Sex: Female
  Weight: 60 kg

DRUGS (6)
  1. DICLOFENAC [Suspect]
     Active Substance: DICLOFENAC
  2. IBUPROFEN. [Suspect]
     Active Substance: IBUPROFEN
  3. PROBENECID AND COLCHICINE [Suspect]
     Active Substance: COLCHICINE\PROBENECID
  4. ATORVASTATIN [Suspect]
     Active Substance: ATORVASTATIN
  5. FUROSEMIDE. [Suspect]
     Active Substance: FUROSEMIDE
  6. PROPOFOL. [Suspect]
     Active Substance: PROPOFOL
     Indication: SEDATION

REACTIONS (25)
  - Overdose [Unknown]
  - Pancytopenia [Unknown]
  - Drug interaction [Unknown]
  - Cardiac arrest [Fatal]
  - Sepsis [Unknown]
  - Shock haemorrhagic [Unknown]
  - Brain oedema [Fatal]
  - Hepatic failure [Unknown]
  - Seizure [Unknown]
  - Haemorrhage [Unknown]
  - Hypotension [Unknown]
  - Diarrhoea [Unknown]
  - Arrhythmia [Fatal]
  - Pulmonary alveolar haemorrhage [Fatal]
  - Toxicity to various agents [Unknown]
  - Rhabdomyolysis [Unknown]
  - Small intestinal haemorrhage [Unknown]
  - Multiple organ dysfunction syndrome [Unknown]
  - Hyperammonaemic encephalopathy [Fatal]
  - Hypoxia [Fatal]
  - Hypertriglyceridaemia [Unknown]
  - Acute lung injury [Unknown]
  - Acute kidney injury [Unknown]
  - Ileus [Unknown]
  - Enterocolitis [Unknown]
